FAERS Safety Report 10788192 (Version 1)
Quarter: 2015Q1

REPORT INFORMATION
  Report Type: Spontaneous
  Country: DE (occurrence: None)
  Receive Date: 20150210
  Receipt Date: 20150210
  Transmission Date: 20150721
  Serious: Yes (Other)
  Sender: FDA-Public Use
  Company Number: 2015PRN00006

PATIENT
  Age: 16 Year
  Sex: Male

DRUGS (11)
  1. LEVETIRACTAM [Suspect]
     Active Substance: LEVETIRACETAM
     Indication: SEIZURE
  2. VORICONAZOLE. [Concomitant]
     Active Substance: VORICONAZOLE
  3. ACICLOVIR (ACYCLOVIR) [Concomitant]
  4. CEFTAZIDIME. [Concomitant]
     Active Substance: CEFTAZIDIME
  5. ETOPOSIDE. [Concomitant]
     Active Substance: ETOPOSIDE
  6. ATG RABBIT (RABBIT ANTI-THYMOCYTE GLOBULIN) [Concomitant]
  7. CIPROFLOXACIN. [Concomitant]
     Active Substance: CIPROFLOXACIN
  8. TOBRAMYCIN. [Concomitant]
     Active Substance: TOBRAMYCIN
  9. TRIMETHOPRIM/SULFAMETHOXAZOLE (TRIMETHOPRIM AND SULFAMETHOXAZOLE) [Concomitant]
  10. TEICOPLANIN [Concomitant]
     Active Substance: TEICOPLANIN
  11. MEROPENEM. [Concomitant]
     Active Substance: MEROPENEM

REACTIONS (3)
  - Transplant failure [None]
  - Bone marrow failure [None]
  - Pancytopenia [None]
